FAERS Safety Report 4978451-6 (Version None)
Quarter: 2006Q1

REPORT INFORMATION
  Report Type: 
  Country: None (occurrence: None)
  Receive Date: 20060227
  Receipt Date: 20050527
  Transmission Date: 20060701
  Serious: Yes (Disabling)
  Sender: FDA-Public Use
  Company Number: WAES 0505USA03341

PATIENT
  Age: 77 Year
  Sex: Male

DRUGS (2)
  1. ZOCOR [Suspect]
     Indication: BLOOD CHOLESTEROL INCREASED
     Dosage: 30 MG HS PO
     Route: 048
     Dates: start: 20020501
  2. GLYBURIDE [Concomitant]

REACTIONS (1)
  - PARAESTHESIA [None]
